FAERS Safety Report 17824091 (Version 1)
Quarter: 2020Q2

REPORT INFORMATION
  Report Type: Spontaneous
  Country: US (occurrence: US)
  Receive Date: 20200526
  Receipt Date: 20200526
  Transmission Date: 20200714
  Serious: Yes (Other)
  Sender: FDA-Public Use
  Company Number: None

PATIENT
  Age: 77 Year
  Sex: Male
  Weight: 74.25 kg

DRUGS (2)
  1. MULTIPLE VITAMIN [Concomitant]
     Active Substance: VITAMINS
  2. VOLTAREN [Suspect]
     Active Substance: DICLOFENAC SODIUM
     Indication: ARTHRITIS
     Dosage: ?          QUANTITY:1 GEL APPLIED TO SKI;?
     Route: 061
     Dates: start: 20200511, end: 20200516

REACTIONS (3)
  - Blister [None]
  - Application site erythema [None]
  - Application site warmth [None]

NARRATIVE: CASE EVENT DATE: 20200519
